FAERS Safety Report 18065055 (Version 1)
Quarter: 2020Q3

REPORT INFORMATION
  Report Type: Spontaneous
  Country: US (occurrence: US)
  Receive Date: 20200724
  Receipt Date: 20200724
  Transmission Date: 20201103
  Serious: No
  Sender: FDA-Public Use
  Company Number: US-MYLANLABS-2020M1065111

PATIENT
  Sex: Female

DRUGS (1)
  1. FENTANYL TRANSDERMAL SYSTEM [Suspect]
     Active Substance: FENTANYL
     Indication: PAIN
     Dosage: UNK
     Route: 062

REACTIONS (4)
  - Inappropriate schedule of product administration [Recovering/Resolving]
  - Product adhesion issue [Unknown]
  - Drug ineffective [Recovering/Resolving]
  - Pain [Not Recovered/Not Resolved]
